FAERS Safety Report 16786576 (Version 2)
Quarter: 2019Q3

REPORT INFORMATION
  Report Type: Spontaneous
  Country: TR (occurrence: TR)
  Receive Date: 20190909
  Receipt Date: 20190912
  Transmission Date: 20191005
  Serious: Yes (Hospitalization, Disabling)
  Sender: FDA-Public Use
  Company Number: TR-BAXTER-2019BAX017373

PATIENT
  Age: 60 Year
  Sex: Male

DRUGS (2)
  1. PHYSIONEAL 40 %2.27 CLEARFLEX PERITON DIYALIZ COZELTISI [Suspect]
     Active Substance: CALCIUM\DEXTROSE\MAGNESIUM\SODIUM BICARBONATE\SODIUM CHLORIDE\SODIUM LACTATE
     Indication: PERITONEAL DIALYSIS
     Route: 033
  2. EXTRANEAL [Suspect]
     Active Substance: CALCIUM CHLORIDE\ICODEXTRIN\MAGNESIUM CHLORIDE\SODIUM CHLORIDE\SODIUM LACTATE
     Indication: PERITONEAL DIALYSIS
     Route: 033

REACTIONS (2)
  - Blood pressure increased [Unknown]
  - Paralysis [Not Recovered/Not Resolved]
